FAERS Safety Report 9548398 (Version 3)
Quarter: 2013Q4

REPORT INFORMATION
  Report Type: Spontaneous
  Country: HU (occurrence: HU)
  Receive Date: 20130924
  Receipt Date: 20131101
  Transmission Date: 20140711
  Serious: Yes (Death, Hospitalization)
  Sender: FDA-Public Use
  Company Number: PHHY2013HU101175

PATIENT
  Age: 35 Year
  Sex: Female

DRUGS (10)
  1. OXCARBAZEPINE [Suspect]
     Indication: EPILEPSY
  2. CLONAZEPAM [Suspect]
     Indication: EPILEPSY
     Route: 042
  3. LEVETIRACETAM [Suspect]
     Indication: EPILEPSY
     Route: 042
  4. LAMOTRIGINE [Suspect]
     Indication: EPILEPSY
  5. DIAZEPAM [Suspect]
     Indication: EPILEPSY
     Route: 042
  6. MIDAZOLAM [Suspect]
     Indication: EPILEPSY
     Route: 042
  7. PHENYTOIN [Suspect]
     Indication: EPILEPSY
     Route: 042
  8. LEVOTHYROXINE [Concomitant]
     Indication: EPILEPSY
     Dosage: 75 UG, UNK
  9. LEVOTHYROXINE [Concomitant]
     Dosage: 100 UG, UNK
  10. LEVOTHYROXINE [Concomitant]
     Dosage: 125 UG, UNK

REACTIONS (4)
  - Completed suicide [Fatal]
  - Status epilepticus [Recovered/Resolved]
  - Grand mal convulsion [Recovered/Resolved]
  - Drug ineffective [Recovered/Resolved]
